FAERS Safety Report 5258723-0 (Version None)
Quarter: 2007Q1

REPORT INFORMATION
  Report Type: 
  Country: None (occurrence: None)
  Receive Date: 20070308
  Receipt Date: 20070302
  Transmission Date: 20070707
  Serious: Yes (Disabling)
  Sender: FDA-Public Use
  Company Number: US-AVENTIS-200711495US

PATIENT
  Age: 35 Year
  Sex: Female

DRUGS (5)
  1. LANTUS [Suspect]
     Dates: start: 20070226, end: 20070101
  2. LANTUS [Suspect]
     Dates: start: 20070101, end: 20070101
  3. LANTUS [Suspect]
     Dates: start: 20070301
  4. GLUCOPHAGE [Concomitant]
     Dosage: DOSE: UNK
     Dates: start: 20070201
  5. GLUCOTROL [Concomitant]
     Dosage: DOSE: UNK
     Dates: start: 20070201

REACTIONS (3)
  - BLOOD GLUCOSE INCREASED [None]
  - DRUG INEFFECTIVE [None]
  - VISION BLURRED [None]
